FAERS Safety Report 4293972-X (Version None)
Quarter: 2004Q1

REPORT INFORMATION
  Report Type: 
  Country: None (occurrence: None)
  Receive Date: 20040210
  Receipt Date: 20040127
  Transmission Date: 20041129
  Serious: Yes (Hospitalization)
  Sender: FDA-Public Use
  Company Number: 2004-BP-00621BP

PATIENT
  Age: 69 Year
  Sex: Female

DRUGS (8)
  1. MICARDIS [Suspect]
     Indication: CARDIOVASCULAR DISORDER
     Route: 048
     Dates: start: 20030901, end: 20031013
  2. MICARDIS [Suspect]
     Indication: MYOCARDIAL INFARCTION
     Route: 048
     Dates: start: 20030901, end: 20031013
  3. MICARDIS [Suspect]
     Indication: PROPHYLAXIS
     Route: 048
     Dates: start: 20030901, end: 20031013
  4. AMLODIPINE [Concomitant]
  5. ESPIRONOLACTON [Concomitant]
  6. HIDROCLOROTIEZIDA [Concomitant]
  7. FUROSEMIDE [Concomitant]
  8. NITRATE [Concomitant]

REACTIONS (2)
  - HAEMODIALYSIS [None]
  - RENAL FAILURE [None]
